APPROVED DRUG PRODUCT: ENALAPRILAT
Active Ingredient: ENALAPRILAT
Strength: 1.25MG/ML
Dosage Form/Route: INJECTABLE;INJECTION
Application: A078687 | Product #001 | TE Code: AP
Applicant: HIKMA FARMACEUTICA (PORTUGAL) SA
Approved: Dec 23, 2008 | RLD: No | RS: Yes | Type: RX